FAERS Safety Report 7432594-6 (Version None)
Quarter: 2011Q2

REPORT INFORMATION
  Report Type: 
  Country: None (occurrence: None)
  Receive Date: 20110422
  Receipt Date: 20110412
  Transmission Date: 20111010
  Serious: No
  Sender: FDA-Public Use
  Company Number: US-B.I. PHARMACEUTICALS,INC./RIDGEFIELD-2011-BP-10639BP

PATIENT
  Sex: Male

DRUGS (9)
  1. TONIC WATER [Suspect]
     Indication: MUSCLE SPASMS
     Route: 048
  2. CRESTOR [Concomitant]
     Indication: BLOOD CHOLESTEROL INCREASED
     Dosage: 5 MG
     Route: 048
  3. RESTASIS [Concomitant]
     Indication: DRY EYE
     Route: 047
  4. PRADAXA [Suspect]
     Indication: ATRIAL FIBRILLATION
     Dosage: 300 MG
     Route: 048
     Dates: start: 20101218, end: 20110402
  5. PRADAXA [Suspect]
     Dosage: 300 MG
     Route: 048
  6. MULTAQ [Concomitant]
     Indication: ATRIAL FIBRILLATION
     Dosage: 400 MG
     Route: 048
  7. SINGULAIR [Suspect]
     Indication: MULTIPLE ALLERGIES
     Route: 048
     Dates: end: 20110402
  8. ZETIA [Concomitant]
     Indication: BLOOD CHOLESTEROL INCREASED
     Dosage: 10 MG
     Route: 048
  9. LIDODERM [Concomitant]
     Indication: BACK DISORDER
     Route: 061

REACTIONS (4)
  - PHARYNGEAL ERYTHEMA [None]
  - OROPHARYNGEAL PAIN [None]
  - PHARYNGEAL OEDEMA [None]
  - DYSPHAGIA [None]
